FAERS Safety Report 7738782-3 (Version None)
Quarter: 2011Q3

REPORT INFORMATION
  Report Type: 
  Country: None (occurrence: None)
  Receive Date: 20110908
  Receipt Date: 20110826
  Transmission Date: 20111222
  Serious: Yes (Hospitalization, Disabling)
  Sender: FDA-Public Use
  Company Number: JP-MYLANLABS-2011S1017941

PATIENT
  Age: 64 Year
  Sex: Female

DRUGS (4)
  1. PACLITAXEL [Suspect]
     Route: 041
     Dates: start: 20110707, end: 20110707
  2. CARBOPLATIN [Suspect]
     Route: 041
     Dates: start: 20110707, end: 20110707
  3. CARBOPLATIN [Suspect]
     Indication: OVARIAN CANCER
     Route: 041
     Dates: start: 20110528, end: 20110528
  4. PACLITAXEL [Suspect]
     Indication: OVARIAN CANCER
     Route: 041
     Dates: start: 20110528, end: 20110528

REACTIONS (1)
  - PSEUDOMEMBRANOUS COLITIS [None]
